FAERS Safety Report 18986427 (Version 1)
Quarter: 2021Q1

REPORT INFORMATION
  Report Type: Spontaneous
  Country: US (occurrence: US)
  Receive Date: 20210308
  Receipt Date: 20210308
  Transmission Date: 20210420
  Serious: Yes (Disabling, Other)
  Sender: FDA-Public Use
  Company Number: None

PATIENT
  Age: 32 Year
  Sex: Female

DRUGS (4)
  1. SPIRONOLACTONE. [Concomitant]
     Active Substance: SPIRONOLACTONE
  2. PARAGARD T 380A [Suspect]
     Active Substance: COPPER
  3. UBRELVY [Concomitant]
     Active Substance: UBROGEPANT
  4. PROGESTERONE. [Concomitant]
     Active Substance: PROGESTERONE

REACTIONS (12)
  - Bacterial infection [None]
  - Hormone level abnormal [None]
  - Heart rate increased [None]
  - Pain [None]
  - Fatigue [None]
  - Weight increased [None]
  - Depression [None]
  - Abdominal pain [None]
  - Abdominal distension [None]
  - Device breakage [None]
  - Iron deficiency [None]
  - Fungal infection [None]
